FAERS Safety Report 8909264 (Version 3)
Quarter: 2013Q4

REPORT INFORMATION
  Report Type: Spontaneous
  Country: US (occurrence: None)
  Receive Date: 20121026
  Receipt Date: 20131223
  Transmission Date: 20140711
  Serious: Yes (Hospitalization)
  Sender: FDA-Public Use
  Company Number: GAM-137-12-US

PATIENT
  Age: 50 Year
  Sex: Female

DRUGS (16)
  1. OCTAGAM 5% [Suspect]
     Indication: MYASTHENIA GRAVIS
     Dates: start: 20100726, end: 20100730
  2. ATENOLOL [Concomitant]
  3. LOVASTATIN [Concomitant]
  4. LISINOPRIL [Concomitant]
  5. ACETAMINOPHEN [Concomitant]
  6. HYDROCODONE [Concomitant]
  7. MYCOHENOLATE MOFETIL [Concomitant]
  8. PYRIDOSTIGMINE [Concomitant]
  9. PAROXETINE [Concomitant]
  10. DEXAMETHASONE [Concomitant]
  11. DIPHENHYDRAMINE [Concomitant]
  12. ACETAMINOPHEN [Concomitant]
  13. FLUOXETINE [Concomitant]
  14. ACYCLOVIR [Concomitant]
  15. NAPROXEN [Concomitant]
  16. VITAMIN B12 [Concomitant]

REACTIONS (1)
  - Myocardial infarction [None]
